FAERS Safety Report 9704180 (Version 2)
Quarter: 2013Q4

REPORT INFORMATION
  Report Type: Spontaneous
  Country: US (occurrence: US)
  Receive Date: 20131122
  Receipt Date: 20131216
  Transmission Date: 20140711
  Serious: No
  Sender: FDA-Public Use
  Company Number: US-JNJFOC-20131105811

PATIENT
  Sex: Female

DRUGS (12)
  1. SANDOZ FENTANYL TRANSDERMAL SYSTEM [Suspect]
     Indication: CANCER PAIN
     Route: 062
     Dates: start: 20131108
  2. SANDOZ FENTANYL TRANSDERMAL SYSTEM [Suspect]
     Indication: CANCER PAIN
     Route: 062
     Dates: start: 20130724, end: 20130808
  3. SANDOZ FENTANYL TRANSDERMAL SYSTEM [Suspect]
     Indication: CANCER PAIN
     Route: 062
     Dates: start: 20130808, end: 2013
  4. ORTHO-TRICYCLEN LO [Concomitant]
     Indication: CONTRACEPTION
     Route: 048
     Dates: start: 20110830
  5. OXYCODONE [Concomitant]
     Dosage: 5 MCG/10 MCG ONE OR TWO TABLETS EVERY 4 HOURS
     Route: 048
     Dates: start: 20130728
  6. OXYCODONE AND ACETAMINOPHEN [Concomitant]
     Dosage: 5/325 MCG TABLETS EVERY 6 HOURS AS NEEEDED
     Route: 048
     Dates: end: 20130728
  7. ADVAIR [Concomitant]
     Dosage: 115/21 MCG 2 PUFFS BID
     Route: 055
     Dates: start: 20070803
  8. ZOLPIDEM [Concomitant]
     Indication: SLEEP DISORDER
     Route: 048
     Dates: start: 20120413
  9. NEXIUM [Concomitant]
     Route: 048
     Dates: start: 20130613
  10. NEXIUM [Concomitant]
     Route: 048
     Dates: end: 20130613
  11. NEXIUM [Concomitant]
     Route: 048
     Dates: start: 20100617
  12. PREDNISONE [Concomitant]
     Route: 065
     Dates: start: 20131010, end: 20131015

REACTIONS (3)
  - Pain [Not Recovered/Not Resolved]
  - Drug dose omission [Not Recovered/Not Resolved]
  - Product packaging issue [Unknown]
